FAERS Safety Report 13910684 (Version 2)
Quarter: 2017Q3

REPORT INFORMATION
  Report Type: Spontaneous
  Country: FR (occurrence: FR)
  Receive Date: 20170828
  Receipt Date: 20170914
  Transmission Date: 20171127
  Serious: Yes (Death, Hospitalization, Other)
  Sender: FDA-Public Use
  Company Number: FR-PFIZER INC-2017365999

PATIENT
  Age: 66 Year
  Sex: Male

DRUGS (14)
  1. COZAAR [Concomitant]
     Active Substance: LOSARTAN POTASSIUM
  2. LASILIX [Concomitant]
     Active Substance: FUROSEMIDE
  3. DOCETAXEL. [Suspect]
     Active Substance: DOCETAXEL
     Indication: PROSTATE CANCER METASTATIC
     Dosage: 150 MG, EVERY 3 WEEKS
     Route: 042
     Dates: start: 20160701, end: 20170110
  4. JEVTANA [Suspect]
     Active Substance: CABAZITAXEL
     Dosage: 40 MG, EVERY 3 WEEKS
     Route: 042
     Dates: start: 20170307, end: 20170509
  5. ZOLPIDEM [Concomitant]
     Active Substance: ZOLPIDEM\ZOLPIDEM TARTRATE
  6. INEXIUM /01479302/ [Concomitant]
     Active Substance: ESOMEPRAZOLE MAGNESIUM
  7. DOLIPRANE [Concomitant]
     Active Substance: ACETAMINOPHEN
  8. JEVTANA [Suspect]
     Active Substance: CABAZITAXEL
     Dosage: 25 MG/M2, EVERY 3 WEEKS
     Dates: start: 20170620, end: 20170718
  9. SOLUPRED [Concomitant]
     Active Substance: PREDNISOLONE
     Indication: PROSTATE CANCER METASTATIC
     Dosage: 10 MG, DAILY
  10. KARDEGIC [Concomitant]
     Active Substance: ASPIRIN LYSINE
  11. METFORMINE [Concomitant]
     Active Substance: METFORMIN HYDROCHLORIDE
     Dosage: 850 MG, 2X/DAY
  12. MOVICOL [Concomitant]
     Active Substance: POLYETHYLENE GLYCOL 3350\POTASSIUM CHLORIDE\SODIUM BICARBONATE\SODIUM CHLORIDE
  13. PAROXETINE. [Concomitant]
     Active Substance: PAROXETINE
     Dosage: 20 MG, 1X/DAY
  14. VERSATIS [Concomitant]
     Active Substance: LIDOCAINE

REACTIONS (1)
  - Myocardial ischaemia [Recovered/Resolved with Sequelae]

NARRATIVE: CASE EVENT DATE: 201705
